FAERS Safety Report 16478928 (Version 1)
Quarter: 2019Q2

REPORT INFORMATION
  Report Type: Spontaneous
  Country: GB (occurrence: GB)
  Receive Date: 20190626
  Receipt Date: 20190626
  Transmission Date: 20190711
  Serious: Yes (Other)
  Sender: FDA-Public Use
  Company Number: GB-BAYER-2019-121108

PATIENT
  Age: 43 Year
  Sex: Female
  Weight: 83 kg

DRUGS (2)
  1. MIRENA [Suspect]
     Active Substance: LEVONORGESTREL
     Indication: CONTRACEPTION
     Dosage: 20 MCG/24HR, CONT
     Route: 015
  2. MIRENA [Suspect]
     Active Substance: LEVONORGESTREL
     Indication: CONTRACEPTION

REACTIONS (9)
  - Female orgasmic disorder [Not Recovered/Not Resolved]
  - Somnolence [Unknown]
  - Apathy [Unknown]
  - Lethargy [Not Recovered/Not Resolved]
  - Fatigue [Unknown]
  - Libido decreased [Not Recovered/Not Resolved]
  - Pelvic pain [Not Recovered/Not Resolved]
  - Depression [Not Recovered/Not Resolved]
  - Metrorrhagia [Recovered/Resolved]
